FAERS Safety Report 13885991 (Version 1)
Quarter: 2017Q3

REPORT INFORMATION
  Report Type: Spontaneous
  Country: US (occurrence: US)
  Receive Date: 20170821
  Receipt Date: 20170821
  Transmission Date: 20171127
  Serious: No
  Sender: FDA-Public Use
  Company Number: US-LNK INTERNATIONAL, INC.-2024845

PATIENT
  Sex: Female

DRUGS (1)
  1. DIPHENHYDRAMINE HCL 25 MG [Suspect]
     Active Substance: DIPHENHYDRAMINE HYDROCHLORIDE
     Indication: ARTHROPOD BITE

REACTIONS (3)
  - Swelling face [None]
  - Lip swelling [None]
  - Eye swelling [None]
